FAERS Safety Report 18080945 (Version 3)
Quarter: 2021Q1

REPORT INFORMATION
  Report Type: Spontaneous
  Country: US (occurrence: US)
  Receive Date: 20200728
  Receipt Date: 20210310
  Transmission Date: 20210419
  Serious: Yes (Other)
  Sender: FDA-Public Use
  Company Number: US-GILEAD-2020-0485160

PATIENT
  Age: 46 Year
  Sex: Female
  Weight: 94.79 kg

DRUGS (11)
  1. ATRIPLA [Suspect]
     Active Substance: EFAVIRENZ\EMTRICITABINE\TENOFOVIR DISOPROXIL FUMARATE
     Indication: HIV INFECTION
     Dosage: UNK
     Route: 048
     Dates: start: 2008, end: 201911
  2. ALBUTEROL [SALBUTAMOL] [Concomitant]
     Active Substance: ALBUTEROL
  3. FISH OIL [Concomitant]
     Active Substance: FISH OIL
  4. OXYCODONE [Concomitant]
     Active Substance: OXYCODONE
  5. VITAMINS NOS [Concomitant]
     Active Substance: VITAMINS
  6. ATRIPLA [Suspect]
     Active Substance: EFAVIRENZ\EMTRICITABINE\TENOFOVIR DISOPROXIL FUMARATE
     Dosage: UNK
     Route: 048
     Dates: start: 200808, end: 201911
  7. ALEVE [Concomitant]
     Active Substance: NAPROXEN SODIUM
  8. TYLENOL [Concomitant]
     Active Substance: ACETAMINOPHEN
  9. ZINC. [Concomitant]
     Active Substance: ZINC
  10. VITAMIN B12 [Concomitant]
     Active Substance: CYANOCOBALAMIN
  11. ASPIRIN [ACETYLSALICYLIC ACID] [Concomitant]
     Active Substance: ASPIRIN

REACTIONS (9)
  - Emotional distress [Unknown]
  - Pain [Unknown]
  - Osteoporosis [Unknown]
  - Anhedonia [Unknown]
  - Economic problem [Unknown]
  - Bone density decreased [Not Recovered/Not Resolved]
  - Osteopenia [Not Recovered/Not Resolved]
  - Skeletal injury [Unknown]
  - Anxiety [Unknown]

NARRATIVE: CASE EVENT DATE: 201303
